FAERS Safety Report 10985919 (Version 1)
Quarter: 2015Q1

REPORT INFORMATION
  Report Type: Spontaneous
  Country: US (occurrence: None)
  Receive Date: 20150313
  Receipt Date: 20150313
  Transmission Date: 20150721
  Serious: Yes (Hospitalization)
  Sender: FDA-Public Use
  Company Number: 1378971

PATIENT
  Age: 81 Year
  Sex: Female

DRUGS (7)
  1. XOLAIR [Suspect]
     Active Substance: OMALIZUMAB
     Indication: PRODUCT USED FOR UNKNOWN INDICATION
  2. ADVAIR DISKUS [Concomitant]
     Active Substance: FLUTICASONE PROPIONATE\SALMETEROL XINAFOATE
  3. CELEXA (UNITED STATES) (CITALOPRAM HYDROBROMIDE) [Concomitant]
  4. ROPINIROLE. [Concomitant]
     Active Substance: ROPINIROLE
  5. SPIRIVA (TIOTROPIUM BROMIDE) [Concomitant]
  6. LASIX [Concomitant]
     Active Substance: FUROSEMIDE
  7. VERAPAMIL [Concomitant]
     Active Substance: VERAPAMIL HYDROCHLORIDE

REACTIONS (2)
  - Pneumonia [None]
  - Dyspnoea exertional [None]
